FAERS Safety Report 14329832 (Version 2)
Quarter: 2018Q1

REPORT INFORMATION
  Report Type: Spontaneous
  Country: US (occurrence: US)
  Receive Date: 20171227
  Receipt Date: 20180111
  Transmission Date: 20180509
  Serious: No
  Sender: FDA-Public Use
  Company Number: US-TEVA-2017-US-830082

PATIENT
  Sex: Male

DRUGS (1)
  1. FENTANYL. [Suspect]
     Active Substance: FENTANYL
     Indication: PAIN
     Route: 062

REACTIONS (7)
  - Drug ineffective [Unknown]
  - Blood testosterone decreased [Unknown]
  - Feeling drunk [Unknown]
  - Skin exfoliation [Unknown]
  - Product adhesion issue [Unknown]
  - Skin hypertrophy [Unknown]
  - Hyperhidrosis [Unknown]
